FAERS Safety Report 5895683-3 (Version None)
Quarter: 2008Q3

REPORT INFORMATION
  Report Type: 
  Country: None (occurrence: None)
  Receive Date: 20080924
  Receipt Date: 20071126
  Transmission Date: 20090109
  Serious: Yes (Hospitalization, Other)
  Sender: FDA-Public Use
  Company Number: US-BAYER-200714971NA

PATIENT
  Age: 82 Year
  Sex: Female

DRUGS (7)
  1. CIPRO [Suspect]
     Indication: PERITONITIS BACTERIAL
     Route: 048
     Dates: start: 20071012, end: 20071015
  2. DIANEAL [Concomitant]
     Indication: RENAL FAILURE CHRONIC
     Route: 033
     Dates: start: 20031230
  3. EXTRANEAL THERAPY [Concomitant]
     Indication: RENAL FAILURE CHRONIC
     Route: 033
     Dates: start: 20060315
  4. DIANEAL [Concomitant]
     Indication: RENAL FAILURE CHRONIC
     Dates: start: 20031230
  5. VANCOMYCIN HYDROCHLORIDE [Concomitant]
     Indication: PERITONITIS BACTERIAL
     Dates: start: 20071027
  6. GENTAMICIN [Concomitant]
     Indication: PERITONITIS BACTERIAL
     Dates: start: 20071028
  7. ANCEF [Concomitant]
     Indication: DRUG USE FOR UNKNOWN INDICATION
     Dates: start: 20071015, end: 20071019

REACTIONS (2)
  - EXFOLIATIVE RASH [None]
  - SENSORY DISTURBANCE [None]
